FAERS Safety Report 5354518-8 (Version None)
Quarter: 2007Q2

REPORT INFORMATION
  Report Type: 
  Country: None (occurrence: None)
  Receive Date: 20070608
  Receipt Date: 20070530
  Transmission Date: 20071010
  Serious: Yes (Hospitalization)
  Sender: FDA-Public Use
  Company Number: MEDI-0004722

PATIENT
  Age: 12 Month
  Weight: 7.5 kg

DRUGS (5)
  1. SYNAGIS [Suspect]
     Indication: ANTIVIRAL PROPHYLAXIS
     Dosage: SEE IMGAE
     Route: 030
     Dates: start: 20051007, end: 20060206
  2. SYNAGIS [Suspect]
     Indication: ANTIVIRAL PROPHYLAXIS
     Dosage: SEE IMGAE
     Route: 030
     Dates: start: 20051007
  3. SYNAGIS [Suspect]
     Indication: ANTIVIRAL PROPHYLAXIS
     Dosage: SEE IMGAE
     Route: 030
     Dates: start: 20051118
  4. SYNAGIS [Suspect]
     Indication: ANTIVIRAL PROPHYLAXIS
     Dosage: SEE IMGAE
     Route: 030
     Dates: start: 20051216
  5. SYNAGIS [Suspect]
     Indication: ANTIVIRAL PROPHYLAXIS
     Dosage: SEE IMGAE
     Route: 030
     Dates: start: 20060113

REACTIONS (1)
  - LUNG DISORDER [None]
